FAERS Safety Report 9697695 (Version 2)
Quarter: 2013Q4

REPORT INFORMATION
  Report Type: Spontaneous
  Country: US (occurrence: US)
  Receive Date: 20131120
  Receipt Date: 20131129
  Transmission Date: 20140711
  Serious: No
  Sender: FDA-Public Use
  Company Number: US-PFIZER INC-2013326609

PATIENT
  Age: 73 Year
  Sex: Female
  Weight: 72.11 kg

DRUGS (4)
  1. EFFEXOR [Suspect]
     Indication: BLOOD CHOLESTEROL INCREASED
     Dosage: 20 MG, DAILY
  2. ALDACTONE [Concomitant]
     Indication: HYPERTENSION
     Dosage: 25 MG, DAILY
     Dates: end: 2013
  3. COREG [Concomitant]
     Indication: CARDIAC FAILURE CONGESTIVE
     Dosage: 25 MG, 2X/DAY
  4. LIPITOR [Concomitant]
     Indication: BLOOD CHOLESTEROL INCREASED
     Dosage: 25 MG, DAILY

REACTIONS (2)
  - Off label use [Unknown]
  - Hypertension [Unknown]
